FAERS Safety Report 5960468-6 (Version None)
Quarter: 2008Q4

REPORT INFORMATION
  Report Type: 
  Country: None (occurrence: None)
  Receive Date: 20081118
  Receipt Date: 20081114
  Transmission Date: 20090506
  Serious: Yes (Other)
  Sender: FDA-Public Use
  Company Number: GXKR2008DE10789

PATIENT
  Age: 39 Year
  Sex: Male

DRUGS (1)
  1. AMOXICILLIN TRIHYDRATE (NGX)(AMOXICILLIN TRIHYDRATE) UNKNOWN, 1000MG [Suspect]
     Indication: PERIODONTITIS
     Dosage: 2000 MG/DAILY, ORAL
     Route: 048

REACTIONS (5)
  - PRURITUS [None]
  - PYREXIA [None]
  - RASH [None]
  - SKIN EXFOLIATION [None]
  - SOMNOLENCE [None]
